FAERS Safety Report 10089390 (Version 1)
Quarter: 2014Q2

REPORT INFORMATION
  Report Type: Spontaneous
  Country: US (occurrence: US)
  Receive Date: 20140421
  Receipt Date: 20140421
  Transmission Date: 20141212
  Serious: Yes (Hospitalization, Other)
  Sender: FDA-Public Use
  Company Number: US-PFIZER INC-2014109666

PATIENT
  Age: 68 Year
  Sex: Female
  Weight: 61.22 kg

DRUGS (2)
  1. LYRICA [Suspect]
     Indication: BURNING SENSATION
     Dosage: 50 MG, UNK
     Route: 048
     Dates: start: 2012
  2. LYRICA [Suspect]
     Indication: NEURALGIA
     Dosage: 25 MG, 4X/DAY
     Route: 048
     Dates: start: 2012

REACTIONS (2)
  - Cerebrovascular accident [Unknown]
  - Chest pain [Unknown]
